FAERS Safety Report 9876423 (Version 2)
Quarter: 2014Q1

REPORT INFORMATION
  Report Type: Other
  Country: US (occurrence: US)
  Receive Date: 20140206
  Receipt Date: 20140206
  Transmission Date: 20141002
  Serious: No
  Sender: FDA-Public Use
  Company Number: US-ACORDA-ACO_35404_2013

PATIENT
  Age: 40 Year
  Sex: Female
  Weight: 58.96 kg

DRUGS (9)
  1. AMPYRA [Suspect]
     Indication: MUSCULAR WEAKNESS
     Dosage: 10 MG, BID
     Route: 048
     Dates: start: 201302
  2. GABAPENTIN [Concomitant]
     Indication: SLEEP DISORDER
     Dosage: UNK
  3. PROTONIX [Concomitant]
     Indication: PRODUCT USED FOR UNKNOWN INDICATION
     Dosage: UNK
  4. MULTIVITAMIN [Concomitant]
     Indication: PRODUCT USED FOR UNKNOWN INDICATION
     Dosage: UNK
  5. IRON [Concomitant]
     Indication: PRODUCT USED FOR UNKNOWN INDICATION
     Dosage: UNK
  6. VITAMIN D [Concomitant]
     Indication: PRODUCT USED FOR UNKNOWN INDICATION
     Dosage: UNK
  7. OMEPRAZOLE [Concomitant]
     Indication: GASTROOESOPHAGEAL REFLUX DISEASE
  8. COPAXONE [Concomitant]
     Indication: MULTIPLE SCLEROSIS
  9. AVONEX [Concomitant]
     Indication: MULTIPLE SCLEROSIS
     Dosage: UNK
     Dates: start: 20130718

REACTIONS (3)
  - Lethargy [Recovered/Resolved]
  - Somnolence [Recovered/Resolved]
  - Fatigue [Recovered/Resolved]
